FAERS Safety Report 25923575 (Version 1)
Quarter: 2025Q4

REPORT INFORMATION
  Report Type: Report from Study
  Country: EU (occurrence: EU)
  Receive Date: 20251015
  Receipt Date: 20251015
  Transmission Date: 20260119
  Serious: Yes (Other)
  Sender: ROCHE
  Company Number: EU-ROCHE-10000407335

PATIENT

DRUGS (2)
  1. AVASTIN [Suspect]
     Active Substance: BEVACIZUMAB
     Indication: Hepatocellular carcinoma
     Route: 042
  2. TECENTRIQ [Suspect]
     Active Substance: ATEZOLIZUMAB
     Indication: Hepatocellular carcinoma
     Route: 065

REACTIONS (16)
  - Hyperthyroidism [Unknown]
  - Adrenal insufficiency [Unknown]
  - Skin toxicity [Unknown]
  - Arthritis [Unknown]
  - Colitis [Unknown]
  - Pneumonitis [Unknown]
  - Neuropathy peripheral [Unknown]
  - Myositis [Unknown]
  - Hepatitis [Unknown]
  - Thrombocytopenic purpura [Unknown]
  - Hypertension [Unknown]
  - Proteinuria [Unknown]
  - Upper gastrointestinal haemorrhage [Unknown]
  - Bleeding varicose vein [Unknown]
  - Haemorrhage [Unknown]
  - Hepatic cirrhosis [Unknown]
